FAERS Safety Report 21897057 (Version 1)
Quarter: 2023Q1

REPORT INFORMATION
  Report Type: Report from Study
  Country: FR (occurrence: None)
  Receive Date: 20230123
  Receipt Date: 20230123
  Transmission Date: 20230417
  Serious: Yes (Hospitalization, Other)
  Sender: FDA-Public Use
  Company Number: FR-ROCHE-3086970

PATIENT
  Age: 48 Year
  Sex: Male
  Weight: 64 kg

DRUGS (4)
  1. ATEZOLIZUMAB [Suspect]
     Active Substance: ATEZOLIZUMAB
     Indication: Soft tissue sarcoma
     Dosage: MOST RECENT DOSE ON 09/MAR/2022
     Route: 041
     Dates: start: 20210804, end: 20221116
  2. COBIMETINIB [Suspect]
     Active Substance: COBIMETINIB
     Indication: Soft tissue sarcoma
     Dosage: MOST RECENT DOSE ON 23/MAR/2022
     Route: 048
     Dates: start: 20210804, end: 20221201
  3. COBIMETINIB [Suspect]
     Active Substance: COBIMETINIB
     Dosage: 40 MILLIGRAM EVERY CYCLE(S) 21 DAYS ON / 7 DAYS OFF
     Route: 048
     Dates: start: 20210804, end: 20221201
  4. ACETAMINOPHEN [Concomitant]
     Active Substance: ACETAMINOPHEN
     Route: 048
     Dates: start: 20220412

REACTIONS (2)
  - Cyst drainage [Recovered/Resolved]
  - Myocarditis [Not Recovered/Not Resolved]

NARRATIVE: CASE EVENT DATE: 20220411
